FAERS Safety Report 24249224 (Version 1)
Quarter: 2024Q3

REPORT INFORMATION
  Report Type: Spontaneous
  Country: US (occurrence: US)
  Receive Date: 20240826
  Receipt Date: 20240826
  Transmission Date: 20241016
  Serious: No
  Sender: PFIZER
  Company Number: US-PFIZER INC-PV202400109599

PATIENT
  Age: 75 Year
  Sex: Male

DRUGS (1)
  1. VYNDAMAX [Suspect]
     Active Substance: TAFAMIDIS

REACTIONS (5)
  - Hypoaesthesia [Unknown]
  - Dyspnoea [Unknown]
  - Gait disturbance [Unknown]
  - Walking aid user [Unknown]
  - Blood pressure abnormal [Unknown]
